FAERS Safety Report 6130951-1 (Version None)
Quarter: 2009Q1

REPORT INFORMATION
  Report Type: 
  Country: None (occurrence: None)
  Receive Date: 20090325
  Receipt Date: 20090313
  Transmission Date: 20090719
  Serious: Yes (Hospitalization, Other)
  Sender: FDA-Public Use
  Company Number: JP-SANOFI-SYNTHELABO-A01200901387

PATIENT
  Sex: Female
  Weight: 60 kg

DRUGS (4)
  1. AVASTIN [Suspect]
     Route: 041
     Dates: start: 20090108, end: 20090108
  2. ISOVORIN [Suspect]
     Route: 041
     Dates: start: 20090101, end: 20090101
  3. FLUOROURACIL [Suspect]
     Route: 042
     Dates: start: 20090101, end: 20090101
  4. ELPLAT [Suspect]
     Indication: RECTAL CANCER METASTATIC
     Route: 041
     Dates: start: 20090108, end: 20090108

REACTIONS (1)
  - LEUKOENCEPHALOPATHY [None]
